FAERS Safety Report 8150699-1 (Version None)
Quarter: 2012Q1

REPORT INFORMATION
  Report Type: 
  Country: None (occurrence: None)
  Receive Date: 20120220
  Receipt Date: 20120208
  Transmission Date: 20120608
  Serious: Yes (Hospitalization)
  Sender: FDA-Public Use
  Company Number: PHHY2009AU25920

PATIENT
  Sex: Male

DRUGS (5)
  1. CLOZARIL [Suspect]
     Indication: SCHIZOPHRENIA
     Dosage: 700 MG, 2/52
     Route: 048
     Dates: start: 20060628
  2. RISPERIDONE [Concomitant]
     Indication: SCHIZOPHRENIA
     Dosage: 75 MG, UNK
     Route: 030
     Dates: start: 20070101
  3. VALPROATE SODIUM [Concomitant]
     Indication: EPILEPSY
     Dosage: 100 MG, BID
     Dates: start: 20070101
  4. QUETIAPINE [Concomitant]
     Indication: SCHIZOPHRENIA
     Dosage: 300 MG, BID
     Route: 048
     Dates: start: 20090101
  5. FLUVOXAMINE MALEATE [Concomitant]
     Dosage: 25 MG DAILY
     Route: 048

REACTIONS (4)
  - WHITE BLOOD CELL COUNT DECREASED [None]
  - NEUTROPHIL COUNT DECREASED [None]
  - SCHIZOPHRENIA [None]
  - MENTAL IMPAIRMENT [None]
